FAERS Safety Report 7753399-2 (Version None)
Quarter: 2011Q3

REPORT INFORMATION
  Report Type: 
  Country: None (occurrence: None)
  Receive Date: 20110915
  Receipt Date: 20110908
  Transmission Date: 20111222
  Serious: Yes (Other)
  Sender: FDA-Public Use
  Company Number: PHHY2011GB79855

PATIENT
  Age: 74 Year
  Sex: Female
  Weight: 70 kg

DRUGS (16)
  1. RISEDRONATE SODIUM [Concomitant]
     Dosage: UNK
     Dates: start: 20110601, end: 20110630
  2. TRAMADOL HCL [Concomitant]
     Dosage: UNK
     Dates: start: 20110601, end: 20110630
  3. FLUOROURACIL [Concomitant]
     Dosage: UNK
     Dates: start: 20110621, end: 20110802
  4. LEVOTHYROXINE SODIUM [Concomitant]
     Dosage: UNK
     Dates: start: 20110728, end: 20110825
  5. SIMVASTATIN [Concomitant]
     Dosage: UNK
     Dates: start: 20110728, end: 20110825
  6. CETIRIZINE HCL [Concomitant]
     Dosage: UNK
     Dates: start: 20110513, end: 20110610
  7. ISPAGHULA HUSK [Concomitant]
     Dosage: UNK
     Dates: start: 20110601, end: 20110630
  8. ASPIRIN [Concomitant]
     Dosage: UNK
     Dates: start: 20110601, end: 20110630
  9. LEVOTHYROXINE SODIUM [Concomitant]
     Dosage: UNK
     Dates: start: 20110601, end: 20110630
  10. SIMVASTATIN [Concomitant]
     Dosage: UNK
     Dates: start: 20110601, end: 20110630
  11. RAMIPRIL [Suspect]
  12. HYDROXOCOBALAMIN [Concomitant]
     Dosage: UNK
     Dates: start: 20110620, end: 20110621
  13. ALCLOMETASONE DIPROPIONATE [Concomitant]
     Dosage: UNK
     Dates: start: 20110621, end: 20110802
  14. AMITRIPTYLINE HYDROCHLORIDE [Concomitant]
     Dosage: UNK
     Dates: start: 20110601, end: 20110630
  15. ACETAMINOPHEN [Concomitant]
     Dosage: UNK
     Dates: start: 20110728, end: 20110825
  16. DILTIAZEM HCL [Concomitant]
     Dosage: UNK
     Dates: start: 20110513, end: 20110623

REACTIONS (1)
  - RESTLESSNESS [None]
